FAERS Safety Report 15247705 (Version 1)
Quarter: 2018Q3

REPORT INFORMATION
  Report Type: Other
  Country: GB (occurrence: GB)
  Receive Date: 20180807
  Receipt Date: 20180807
  Transmission Date: 20181010
  Serious: Yes (Other)
  Sender: FDA-Public Use
  Company Number: GB-LUPIN PHARMACEUTICALS INC.-2018-05505

PATIENT
  Age: 76 Year
  Sex: Female

DRUGS (2)
  1. MEMANTINE HYDROCHLORIDE TABLETS [Suspect]
     Active Substance: MEMANTINE HYDROCHLORIDE
     Indication: PRODUCT USED FOR UNKNOWN INDICATION
     Dosage: ON 21/04/2018, 21/04/2018 AND 22/04/2018
     Route: 048
     Dates: start: 20180421, end: 20180422
  2. RIVASTIGMINE. [Suspect]
     Active Substance: RIVASTIGMINE
     Indication: PRODUCT USED FOR UNKNOWN INDICATION
     Dosage: ON 20/04/2018, 21/04/2018 AND 22/04/2018
     Route: 065
     Dates: start: 20180420, end: 20180422

REACTIONS (3)
  - Hyperhidrosis [Unknown]
  - Accidental overdose [Unknown]
  - Vomiting [Unknown]

NARRATIVE: CASE EVENT DATE: 20180423
